FAERS Safety Report 10193030 (Version 2)
Quarter: 2014Q2

REPORT INFORMATION
  Report Type: Spontaneous
  Country: FR (occurrence: FR)
  Receive Date: 20140524
  Receipt Date: 20140531
  Transmission Date: 20141212
  Serious: Yes (Hospitalization)
  Sender: FDA-Public Use
  Company Number: FR-ACCORD-023858

PATIENT
  Age: 60 Year
  Sex: Male

DRUGS (24)
  1. FLUOROURACILE ACCORD [Suspect]
     Indication: NASAL CAVITY CANCER
     Dosage: FROM DAY 1 TO DAY 5.?FIRST CHEMOTHERAPY COURSE
     Route: 042
     Dates: start: 20140218
  2. SPECIAFOLDINE [Concomitant]
     Dosage: 5 MG
  3. ZARZIO [Concomitant]
     Indication: PRODUCT USED FOR UNKNOWN INDICATION
     Dosage: FILGRASTIM (ZARZIO 48 MU/0.5 ML)?FROM 27-FEB-2014 FOR 5 DAYS
     Dates: start: 20140227
  4. TAXOTERE [Suspect]
     Indication: NASAL CAVITY CANCER
     Dosage: FIRST CHEMOTHERAPY COURSE
     Route: 042
     Dates: start: 20140218
  5. ALDACTONE [Concomitant]
     Dosage: 50 MG
  6. EMEND [Suspect]
     Indication: PREMEDICATION
     Dosage: SINGLE INTAKE
     Dates: start: 201402
  7. ASCORBIC ACID [Concomitant]
  8. CELLCEPT [Suspect]
     Indication: PRODUCT USED FOR UNKNOWN INDICATION
     Dates: end: 201402
  9. AMLODIPINE [Concomitant]
  10. ALPRAZOLAM [Concomitant]
     Dosage: 0.25
  11. METHYLPREDNISOLONE [Suspect]
     Indication: PREMEDICATION
     Dosage: SINGLE INTAKE
     Dates: start: 201402
  12. MAG [Concomitant]
     Dosage: 2100 MG
  13. ATENOLOL/ATENOLOL HYDROCHLORIDE [Concomitant]
  14. ZOPHREN [Suspect]
     Indication: PREMEDICATION
     Dosage: SINGLE INTAKE
     Dates: start: 201402
  15. TRIATEC [Concomitant]
     Dosage: STRENGTH: 5 MG
  16. COMBIGAN [Concomitant]
     Dosage: 1 DROP TWICE A DAY
  17. IMOVANE [Concomitant]
     Dosage: 7.5 MG
  18. TRUSOPT [Concomitant]
     Dosage: 1 DROP THREE TIMES A DAY
  19. SOLUPRED [Suspect]
     Indication: PRODUCT USED FOR UNKNOWN INDICATION
  20. LYRICA [Concomitant]
     Dosage: 25 MG
  21. DOLIPRANE [Concomitant]
     Dosage: 1000
  22. MOPRAL [Concomitant]
     Indication: PRODUCT USED FOR UNKNOWN INDICATION
     Dosage: OMEPRAZOLE (MOPRAL 20 MG) 1 DOSAGE FORM PER DAY
  23. CARBOPLATINE HOSPIRA [Suspect]
     Indication: NASAL CAVITY CANCER
     Route: 042
     Dates: start: 20140218
  24. HYPERIUM [Concomitant]
     Dosage: 1 MG

REACTIONS (6)
  - Diarrhoea [Recovered/Resolved]
  - Hypokalaemia [Recovered/Resolved]
  - Atrial fibrillation [Recovered/Resolved with Sequelae]
  - Thrombocytopenia [Recovered/Resolved]
  - Lymphopenia [Unknown]
  - Febrile neutropenia [Recovered/Resolved]
